FAERS Safety Report 9248162 (Version 1)
Quarter: 2013Q2

REPORT INFORMATION
  Report Type: Spontaneous
  Country: US (occurrence: None)
  Receive Date: 20130419
  Receipt Date: 20130419
  Transmission Date: 20140414
  Serious: Yes (Hospitalization)
  Sender: FDA-Public Use
  Company Number: None

PATIENT
  Age: 58 Year
  Sex: Male
  Weight: 68.5 kg

DRUGS (1)
  1. GEMCITABINE HYDROCHLORIDE [Suspect]
     Dates: end: 20130323

REACTIONS (16)
  - Abdominal pain [None]
  - Chills [None]
  - Constipation [None]
  - Nausea [None]
  - Vomiting [None]
  - Fatigue [None]
  - Hyperbilirubinaemia [None]
  - Pain [None]
  - Asthenia [None]
  - Hepatic steatosis [None]
  - Hepatic cirrhosis [None]
  - Ascites [None]
  - Hepatic failure [None]
  - Pleural effusion [None]
  - Anaemia [None]
  - Dehydration [None]
